FAERS Safety Report 6870090-5 (Version None)
Quarter: 2010Q3

REPORT INFORMATION
  Report Type: 
  Country: None (occurrence: None)
  Receive Date: 20100722
  Receipt Date: 20100712
  Transmission Date: 20110219
  Serious: Yes (Other)
  Sender: FDA-Public Use
  Company Number: JP-PFIZER INC-2010067741

PATIENT
  Age: 59 Year
  Sex: Female
  Weight: 40 kg

DRUGS (8)
  1. SUNITINIB MALATE [Suspect]
     Indication: RENAL CELL CARCINOMA
     Dosage: 25 MG, 1X/DAY
     Route: 048
     Dates: start: 20090716
  2. NOVORAPID [Concomitant]
     Indication: DIABETES MELLITUS
     Dosage: 6 IU, 3X/DAY
     Route: 058
  3. INSULIN DETEMIR [Concomitant]
     Indication: DIABETES MELLITUS
     Route: 058
  4. LASIX [Concomitant]
     Indication: RENAL IMPAIRMENT
     Dosage: 20 MG, 1X/DAY
     Route: 042
     Dates: start: 20090723, end: 20090803
  5. LASIX [Concomitant]
     Dosage: 20 MG, 2X/DAY
     Route: 048
     Dates: start: 20090804, end: 20090826
  6. LASIX [Concomitant]
     Dosage: 20 MG, 1X/DAY
     Route: 048
     Dates: start: 20090827
  7. MUCOSOLVAN [Concomitant]
     Dosage: 45 MG, 1X/DAY
     Route: 048
  8. DASEN [Concomitant]
     Dosage: 30 MG, 1X/DAY
     Route: 048

REACTIONS (1)
  - DIPLOPIA [None]
